FAERS Safety Report 10059944 (Version 4)
Quarter: 2015Q1

REPORT INFORMATION
  Report Type: Report from Study
  Country: ES (occurrence: ES)
  Receive Date: 20140404
  Receipt Date: 20150227
  Transmission Date: 20150720
  Serious: Yes (Other)
  Sender: FDA-Public Use
  Company Number: ES-GLAXOSMITHKLINE-B0953164A

PATIENT
  Age: 38 Year
  Sex: Female

DRUGS (2)
  1. TRAMETINIB [Suspect]
     Active Substance: TRAMETINIB
     Indication: METASTATIC MALIGNANT MELANOMA
     Route: 048
     Dates: start: 20131014
  2. DABRAFENIB [Suspect]
     Active Substance: DABRAFENIB
     Indication: METASTATIC MALIGNANT MELANOMA
     Route: 048
     Dates: start: 20131014

REACTIONS (5)
  - Panniculitis [Recovered/Resolved]
  - Dyspepsia [Recovered/Resolved with Sequelae]
  - Dry skin [Not Recovered/Not Resolved]
  - Panniculitis [Recovered/Resolved with Sequelae]
  - Panniculitis [Recovered/Resolved with Sequelae]

NARRATIVE: CASE EVENT DATE: 20131118
